FAERS Safety Report 20434816 (Version 1)
Quarter: 2022Q1

REPORT INFORMATION
  Report Type: Spontaneous
  Country: US (occurrence: US)
  Receive Date: 20220206
  Receipt Date: 20220206
  Transmission Date: 20220423
  Serious: Yes (Hospitalization)
  Sender: FDA-Public Use
  Company Number: US-NOVARTISPH-NVSC2022US017600

PATIENT
  Sex: Female

DRUGS (1)
  1. LISINOPRIL [Suspect]
     Active Substance: LISINOPRIL
     Indication: Product used for unknown indication
     Dosage: UNK
     Route: 065
     Dates: start: 20211224

REACTIONS (6)
  - Hypertension [Unknown]
  - Cough [Unknown]
  - Joint swelling [Unknown]
  - Heart rate increased [Unknown]
  - Headache [Unknown]
  - Musculoskeletal discomfort [Unknown]
